FAERS Safety Report 6336982-0 (Version None)
Quarter: 2009Q3

REPORT INFORMATION
  Report Type: 
  Country: None (occurrence: None)
  Receive Date: 20090901
  Receipt Date: 20090825
  Transmission Date: 20100115
  Serious: Yes (Death, Hospitalization, Other)
  Sender: FDA-Public Use
  Company Number: PHHO2006DE00976

PATIENT
  Sex: Male
  Weight: 75 kg

DRUGS (8)
  1. ZOLEDRONATE T29581+SOLINJ+BM [Suspect]
     Indication: METASTASES TO BONE
     Dosage: EVERY 3 WEEKS
     Route: 042
     Dates: start: 20050308
  2. SU 11248 [Concomitant]
  3. VITAMIN D [Concomitant]
  4. CALCIUM [Concomitant]
  5. ENALAPRIL MALEATE [Concomitant]
     Dosage: UNK
     Dates: start: 20041201, end: 20060122
  6. PANTOZOL [Concomitant]
     Dosage: UNK
     Dates: start: 20040901, end: 20060101
  7. DURAGESIC-100 [Concomitant]
     Dosage: UNK
     Dates: start: 20050925, end: 20060122
  8. FUROSEMIDE [Concomitant]
     Dosage: UNK
     Dates: start: 20050512, end: 20060122

REACTIONS (9)
  - DEHYDRATION [None]
  - GENERAL PHYSICAL HEALTH DETERIORATION [None]
  - HYPOPHAGIA [None]
  - MALIGNANT NEOPLASM PROGRESSION [None]
  - PARAPLEGIA [None]
  - PLEURAL EFFUSION [None]
  - RENAL FAILURE ACUTE [None]
  - SUBILEUS [None]
  - VOMITING [None]
